FAERS Safety Report 4659844-3 (Version None)
Quarter: 2005Q2

REPORT INFORMATION
  Report Type: 
  Country: None (occurrence: None)
  Receive Date: 20050502
  Receipt Date: 20050104
  Transmission Date: 20051028
  Serious: Yes (Hospitalization)
  Sender: FDA-Public Use
  Company Number: 200419794US

PATIENT
  Age: 53 Year
  Sex: Female

DRUGS (7)
  1. KETEK [Suspect]
     Dosage: 800 (X 1 DOSE) MG
  2. PYRIDOSTIGMINE BROMIDE [Concomitant]
  3. PIOGLITAZONE HCL [Concomitant]
  4. BENAZEPRIL HYDROCHLORIDE (LOTENSIN) [Concomitant]
  5. VENLAFAXINE (EFFEXOR XR) [Concomitant]
  6. CARVEDILOL [Concomitant]
  7. AMARYL [Concomitant]

REACTIONS (1)
  - MYASTHENIA GRAVIS CRISIS [None]
